FAERS Safety Report 13749442 (Version 2)
Quarter: 2017Q3

REPORT INFORMATION
  Report Type: Spontaneous
  Country: IT (occurrence: IT)
  Receive Date: 20170713
  Receipt Date: 20170724
  Transmission Date: 20171127
  Serious: Yes (Hospitalization, Other)
  Sender: FDA-Public Use
  Company Number: IT-ADIENNEP-2017AD000165

PATIENT
  Age: 11 Year
  Sex: Male
  Weight: 35 kg

DRUGS (19)
  1. URBASON [Concomitant]
     Active Substance: METHYLPREDNISOLONE
     Dosage: 35 MG
     Dates: start: 20160425, end: 20160603
  2. TAZOCIN [Concomitant]
     Active Substance: PIPERACILLIN SODIUM\TAZOBACTAM SODIUM
     Dosage: 10500 MG
     Dates: start: 20160423, end: 20160424
  3. AMIKACIN SULFATE. [Concomitant]
     Active Substance: AMIKACIN SULFATE
     Dosage: 680 MG
     Dates: start: 20160427, end: 20160512
  4. TRIMETON [Concomitant]
     Active Substance: CHLORPHENIRAMINE MALEATE
     Dosage: 14 MG
     Dates: start: 20160425, end: 20160428
  5. THIOTEPA. [Suspect]
     Active Substance: THIOTEPA
     Indication: BONE MARROW TRANSPLANT
     Dosage: 173.5 MG DAILY
     Route: 042
     Dates: start: 20160422, end: 20160423
  6. ANTITHYMOCYTE IMMUNOGLOBULIN (RABBIT) [Suspect]
     Active Substance: LAPINE T-LYMPHOCYTE IMMUNE GLOBULIN
     Indication: BONE MARROW TRANSPLANT
     Dosage: 69.4 MG DAILY
     Route: 042
     Dates: start: 20160425, end: 20160427
  7. TACHIPIRINA [Concomitant]
     Active Substance: ACETAMINOPHEN
     Dosage: 500 MG
     Dates: start: 20160425, end: 20160427
  8. DEURSIL [Concomitant]
     Active Substance: URSODIOL
     Dosage: 300 MG
     Dates: start: 20160421, end: 20160626
  9. LASIX [Concomitant]
     Active Substance: FUROSEMIDE
     Dosage: 68 MG
     Dates: start: 20160421, end: 20170609
  10. BUSILVEX [Suspect]
     Active Substance: BUSULFAN
     Indication: BONE MARROW TRANSPLANT
     Dosage: 111 MG DAILY
     Route: 042
     Dates: start: 20160424, end: 20160426
  11. ALOXI [Concomitant]
     Active Substance: PALONOSETRON HYDROCHLORIDE
     Dosage: 175 MG
     Dates: start: 20160422, end: 20160424
  12. ACICLOVIR [Concomitant]
     Active Substance: ACYCLOVIR
     Dosage: 1800 MG
     Dates: start: 20160421, end: 20160427
  13. DIAMINOCILLINA [Concomitant]
     Active Substance: PENICILLIN G BENZATHINE
     Dosage: 1200000 LU
     Dates: start: 20160421
  14. VORICONAZOLE. [Concomitant]
     Active Substance: VORICONAZOLE
     Dosage: 620 MG
     Dates: start: 20160421, end: 20160512
  15. RANITIDINE. [Concomitant]
     Active Substance: RANITIDINE
     Dosage: 70 MG
     Dates: start: 20160422, end: 20160429
  16. CYCLOSPORINE. [Concomitant]
     Active Substance: CYCLOSPORINE
     Dosage: 140 MG
     Dates: start: 20160428, end: 20160520
  17. HEPARIN [Concomitant]
     Active Substance: HEPARIN SODIUM
     Dosage: 3500 LU
     Dates: start: 20160421, end: 20160520
  18. FLUDARABINE [Suspect]
     Active Substance: FLUDARABINE PHOSPHATE
     Indication: BONE MARROW TRANSPLANT
     Dosage: 59 MG DAILY
     Route: 042
     Dates: start: 20160424, end: 20160426
  19. MYCOSTATIN [Concomitant]
     Active Substance: NYSTATIN
     Dosage: 30 ML
     Dates: start: 20160421, end: 20160626

REACTIONS (7)
  - Malaise [Recovering/Resolving]
  - Presyncope [Recovering/Resolving]
  - Thrombocytopenia [Recovering/Resolving]
  - Epistaxis [Recovered/Resolved]
  - Anaemia [Recovering/Resolving]
  - Glossitis [Recovered/Resolved]
  - Stomatitis [Recovered/Resolved]

NARRATIVE: CASE EVENT DATE: 20160503
